FAERS Safety Report 5123830-X (Version None)
Quarter: 2006Q4

REPORT INFORMATION
  Report Type: 
  Country: None (occurrence: None)
  Receive Date: 20061010
  Receipt Date: 20061002
  Transmission Date: 20070319
  Serious: Yes (Hospitalization, Other)
  Sender: FDA-Public Use
  Company Number: US-GLAXOSMITHKLINE-A0622122A

PATIENT
  Age: 60 Year
  Sex: Male

DRUGS (6)
  1. ACYCLOVIR [Suspect]
     Dosage: 810MG THREE TIMES PER DAY
     Route: 042
     Dates: start: 20060930
  2. ATRIPLA [Concomitant]
  3. BACTRIM [Concomitant]
     Route: 042
  4. VANCOMYCIN [Concomitant]
  5. ZOCOR [Concomitant]
  6. PHENYTOIN [Concomitant]

REACTIONS (2)
  - CRYSTAL URINE PRESENT [None]
  - URINE ABNORMALITY [None]
